FAERS Safety Report 5732100-8 (Version None)
Quarter: 2008Q2

REPORT INFORMATION
  Report Type: 
  Country: None (occurrence: None)
  Receive Date: 20080506
  Receipt Date: 20080424
  Transmission Date: 20081010
  Serious: Yes (Hospitalization)
  Sender: FDA-Public Use
  Company Number: 2008EN000067

PATIENT
  Age: 35 Year
  Sex: Male

DRUGS (4)
  1. ABELCET [Suspect]
     Indication: ASPERGILLOSIS
     Dosage: 300 MG;QD;IV
     Route: 042
     Dates: start: 20080116, end: 20080117
  2. NEFOPAM [Concomitant]
  3. HEPARIN [Concomitant]
  4. ACETAMINOPHEN [Concomitant]

REACTIONS (1)
  - ATRIAL FIBRILLATION [None]
